FAERS Safety Report 20361738 (Version 1)
Quarter: 2022Q1

REPORT INFORMATION
  Report Type: Spontaneous
  Country: PT (occurrence: PT)
  Receive Date: 20220121
  Receipt Date: 20220121
  Transmission Date: 20220423
  Serious: Yes (Other)
  Sender: FDA-Public Use
  Company Number: PT-Fresenius Kabi-FK202200369

PATIENT

DRUGS (3)
  1. DOXYCYCLINE [Suspect]
     Active Substance: DOXYCYCLINE
     Indication: Malaria
     Dosage: UNK
     Route: 048
  2. DOXYCYCLINE [Concomitant]
     Active Substance: DOXYCYCLINE
     Indication: Malaria
     Dosage: UNK
     Route: 042
  3. QUININE [Concomitant]
     Active Substance: QUININE
     Indication: Malaria
     Dosage: UNK
     Route: 042

REACTIONS (8)
  - Haemolytic anaemia [Recovered/Resolved]
  - Haemoglobinuria [Recovered/Resolved]
  - Cinchonism [Recovered/Resolved]
  - Hypoglycaemia [Recovered/Resolved]
  - Hypoacusis [Recovered/Resolved]
  - Electrocardiogram QT prolonged [Recovered/Resolved]
  - Vomiting [Recovered/Resolved]
  - Intentional product use issue [Recovered/Resolved]
